FAERS Safety Report 5718607-8 (Version None)
Quarter: 2008Q2

REPORT INFORMATION
  Report Type: 
  Country: None (occurrence: None)
  Receive Date: 20080425
  Receipt Date: 20080415
  Transmission Date: 20081010
  Serious: Yes (Life-Threatening, Other)
  Sender: FDA-Public Use
  Company Number: US-PFIZER INC-2008021099

PATIENT
  Sex: Female
  Weight: 51.7 kg

DRUGS (5)
  1. CHANTIX [Suspect]
     Indication: SMOKING CESSATION THERAPY
  2. CELEXA [Concomitant]
     Route: 048
  3. NEURONTIN [Concomitant]
     Route: 048
  4. WELLBUTRIN [Concomitant]
     Route: 048
  5. KLONOPIN [Concomitant]
     Indication: SLEEP DISORDER
     Route: 048

REACTIONS (9)
  - DRY EYE [None]
  - HYPERSOMNIA [None]
  - MENSTRUAL DISORDER [None]
  - MORBID THOUGHTS [None]
  - SUICIDAL BEHAVIOUR [None]
  - SUICIDAL IDEATION [None]
  - VISION BLURRED [None]
  - VISUAL DISTURBANCE [None]
  - WEIGHT DECREASED [None]
